FAERS Safety Report 5277455-6 (Version None)
Quarter: 2007Q1

REPORT INFORMATION
  Report Type: 
  Country: None (occurrence: None)
  Receive Date: 20061213
  Receipt Date: 20060502
  Transmission Date: 20070707
  Serious: No
  Sender: FDA-Public Use
  Company Number: 2006UW06655

PATIENT
  Age: 30 Year
  Sex: Male
  Weight: 77.11 kg

DRUGS (7)
  1. SEROQUEL [Suspect]
     Indication: ANXIETY
  2. SEROQUEL [Suspect]
     Indication: BIPOLAR DISORDER
  3. SEROQUEL [Suspect]
     Indication: SCHIZOPHRENIA
  4. LITHIUM CARBONATE [Concomitant]
  5. XANAX [Concomitant]
  6. RITALIN [Concomitant]
  7. CLONAZEPAM [Concomitant]

REACTIONS (5)
  - DIABETES MELLITUS [None]
  - ILL-DEFINED DISORDER [None]
  - NIGHTMARE [None]
  - RECTAL HAEMORRHAGE [None]
  - VISION BLURRED [None]
